FAERS Safety Report 9691241 (Version 1)
Quarter: 2013Q4

REPORT INFORMATION
  Report Type: Spontaneous
  Country: FR (occurrence: FR)
  Receive Date: 20131115
  Receipt Date: 20131115
  Transmission Date: 20140711
  Serious: Yes (Death)
  Sender: FDA-Public Use
  Company Number: FR-ASTRAZENECA-2013SE84102

PATIENT
  Age: 79 Year
  Sex: Male

DRUGS (46)
  1. INEXIUM [Suspect]
     Route: 048
     Dates: start: 20130830, end: 20130930
  2. AMLODIPINE (ARROW) [Suspect]
     Indication: HYPERTENSION
     Route: 048
     Dates: start: 20130830, end: 20130930
  3. SOLIRIS [Suspect]
     Indication: HAEMOLYTIC URAEMIC SYNDROME
     Route: 042
     Dates: start: 20130905, end: 20130905
  4. SOLIRIS [Suspect]
     Indication: HAEMOLYTIC URAEMIC SYNDROME
     Route: 042
     Dates: start: 20130912, end: 20130912
  5. SOLIRIS [Suspect]
     Indication: HAEMOLYTIC URAEMIC SYNDROME
     Route: 042
     Dates: start: 20130918, end: 20130918
  6. SOLIRIS [Suspect]
     Indication: HAEMOLYTIC URAEMIC SYNDROME
     Route: 042
     Dates: start: 20130924, end: 20130924
  7. SOLIRIS [Suspect]
     Indication: HAEMOLYTIC URAEMIC SYNDROME
     Route: 042
     Dates: start: 20130925, end: 20130925
  8. SOLIRIS [Suspect]
     Indication: HAEMOLYTIC URAEMIC SYNDROME
     Route: 042
     Dates: start: 20130926, end: 20130926
  9. SOLIRIS [Suspect]
     Indication: HAEMOLYTIC URAEMIC SYNDROME
     Route: 042
     Dates: start: 20130927, end: 20130927
  10. SOLIRIS [Suspect]
     Indication: HAEMOLYTIC URAEMIC SYNDROME
     Route: 042
     Dates: start: 20130928, end: 20130928
  11. SOLIRIS [Suspect]
     Indication: HAEMOLYTIC URAEMIC SYNDROME
     Route: 042
     Dates: start: 20130930, end: 20130930
  12. REPAGLINIDE [Suspect]
     Indication: DIABETES MELLITUS
     Route: 048
     Dates: start: 20130906, end: 20130910
  13. REPAGLINIDE [Suspect]
     Indication: DIABETES MELLITUS
     Route: 048
     Dates: start: 20130924, end: 20130930
  14. LASILIX [Suspect]
     Route: 048
     Dates: start: 20130902, end: 20130904
  15. LASILIX [Suspect]
     Route: 048
     Dates: start: 20130905, end: 20130930
  16. MIANSERINE [Suspect]
     Route: 048
     Dates: start: 20130909, end: 20130930
  17. RENVELA [Suspect]
     Route: 048
     Dates: start: 20130904, end: 20130930
  18. ROVAMYCINE [Suspect]
     Dosage: 6 MIU, EVERYDAY
     Route: 048
     Dates: start: 20130920, end: 20130930
  19. LEDERFOLINE [Suspect]
     Route: 048
     Dates: start: 20130928, end: 20130930
  20. MIRCERA [Suspect]
     Dosage: 100 MCG/0.3ML, ONCE
     Route: 058
     Dates: start: 20130907, end: 20130907
  21. MIRCERA [Suspect]
     Dosage: 100 MCG/0.3ML, ONCE
     Route: 058
     Dates: start: 20130921, end: 20130921
  22. CORTANCYL [Suspect]
     Route: 048
     Dates: start: 20130922, end: 20130930
  23. CALCIDIA [Suspect]
     Dosage: 1.54 G SIX TIMES A DAY
     Route: 048
     Dates: start: 20130904, end: 20130930
  24. CONTRAMAL [Suspect]
     Dosage: 50 MG FOUR TIMES A DAY
     Route: 048
     Dates: start: 20130830, end: 20130930
  25. EUPRESSYL [Suspect]
     Route: 048
     Dates: start: 20130916, end: 20130926
  26. EUPRESSYL [Suspect]
     Route: 048
     Dates: start: 20130926, end: 20130930
  27. ARAVA [Concomitant]
     Indication: RHEUMATOID ARTHRITIS
     Dates: start: 2001, end: 20130828
  28. PREDNISONE [Concomitant]
     Indication: RHEUMATOID ARTHRITIS
     Dates: start: 20130920
  29. OMEPRAZOLE [Concomitant]
  30. DIAMICRON [Concomitant]
  31. ZALDIAR [Concomitant]
     Dosage: 1 TO 4 DF EVERYDAY
  32. BROMAZEPAM [Concomitant]
     Dates: end: 20130830
  33. LEXOMIL [Concomitant]
     Dates: start: 20130830
  34. SYMBICORT [Concomitant]
  35. BRONCHODUAL [Concomitant]
  36. VENTOLINE [Concomitant]
  37. MENCEVAX [Concomitant]
     Indication: IMMUNISATION
     Dates: start: 20130905
  38. ORACILLINE [Concomitant]
     Dosage: 2 MIU QD
     Dates: start: 20130905, end: 20130920
  39. METHYLPREDNISOLONE [Concomitant]
     Route: 042
     Dates: start: 20130919, end: 20130921
  40. HYDROCORTISONE SERB [Concomitant]
     Route: 042
     Dates: start: 20130901, end: 20130901
  41. HYDROCORTISONE SERB [Concomitant]
     Route: 042
     Dates: start: 20130902, end: 20130902
  42. HYDROCORTISONE SERB [Concomitant]
     Route: 042
     Dates: start: 20130903, end: 20130903
  43. HYDROCORTISONE SERB [Concomitant]
     Route: 042
     Dates: start: 20130904, end: 20130904
  44. VITAMIN B12 [Concomitant]
     Route: 048
     Dates: start: 20130908, end: 20130916
  45. LANTUS [Concomitant]
     Dates: start: 20130923
  46. PENTACARINAT [Concomitant]
     Dates: start: 20130916, end: 20130916

REACTIONS (3)
  - Cardio-respiratory arrest [Fatal]
  - Cardiac arrest [Fatal]
  - Hypoxic-ischaemic encephalopathy [Fatal]
